FAERS Safety Report 25065375 (Version 1)
Quarter: 2025Q1

REPORT INFORMATION
  Report Type: Spontaneous
  Country: JP (occurrence: JP)
  Receive Date: 20250311
  Receipt Date: 20250311
  Transmission Date: 20250409
  Serious: Yes (Other)
  Sender: EISAI
  Company Number: JP-Eisai-202411439_LEN-RCC_P_1

PATIENT
  Sex: Male

DRUGS (6)
  1. LENVIMA [Suspect]
     Active Substance: LENVATINIB
     Indication: Metastatic renal cell carcinoma
     Dates: start: 20240913, end: 20241011
  2. LENVIMA [Suspect]
     Active Substance: LENVATINIB
     Dates: start: 20241206, end: 20241216
  3. LENVIMA [Suspect]
     Active Substance: LENVATINIB
     Dates: start: 20241224, end: 20250123
  4. LENVIMA [Suspect]
     Active Substance: LENVATINIB
     Dates: start: 20250124
  5. KEYTRUDA [Suspect]
     Active Substance: PEMBROLIZUMAB
     Indication: Metastatic renal cell carcinoma
     Dates: start: 20240913, end: 20241216
  6. KEYTRUDA [Suspect]
     Active Substance: PEMBROLIZUMAB

REACTIONS (2)
  - Adrenal insufficiency [Unknown]
  - Arthritis [Recovering/Resolving]

NARRATIVE: CASE EVENT DATE: 20241216
